FAERS Safety Report 8781826 (Version 1)
Quarter: 2012Q4

REPORT INFORMATION
  Report Type: 
  Country: US (occurrence: US)
  Receive Date: 20120913
  Receipt Date: 20120913
  Transmission Date: 20130627
  Serious: Yes (Death, Hospitalization)
  Sender: FDA-Public Use
  Company Number: US-B.I. PHARMACEUTICALS,INC./RIDGEFIELD-2012-BP-22447BP

PATIENT
  Sex: Female

DRUGS (1)
  1. PRADAXA [Suspect]
     Indication: ATRIAL FIBRILLATION
     Dates: start: 20110108

REACTIONS (9)
  - Septic shock [Fatal]
  - Metabolic acidosis [Fatal]
  - Upper gastrointestinal haemorrhage [Fatal]
  - Lower gastrointestinal haemorrhage [Fatal]
  - Haemorrhage [Fatal]
  - Intestinal perforation [Fatal]
  - Pneumatosis intestinalis [Fatal]
  - Coagulopathy [Fatal]
  - Dyspnoea [Fatal]
